FAERS Safety Report 6089094-8 (Version None)
Quarter: 2009Q1

REPORT INFORMATION
  Report Type: 
  Country: None (occurrence: None)
  Receive Date: 20090219
  Receipt Date: 20090206
  Transmission Date: 20090719
  Serious: Yes (Hospitalization)
  Sender: FDA-Public Use
  Company Number: ENT-2008-0199

PATIENT
  Age: 73 Year
  Sex: Male

DRUGS (13)
  1. COMTAN [Suspect]
     Indication: PARKINSON'S DISEASE
     Dosage: 100 MG ORAL
     Route: 048
     Dates: start: 20080924, end: 20081112
  2. LEVODOPA [Suspect]
     Dosage: 300 MG ORAL
     Route: 048
     Dates: end: 20081112
  3. LEVODOPA [Suspect]
     Dosage: 300 MG ORAL
     Route: 048
     Dates: start: 20081113
  4. ARTANE [Concomitant]
  5. CARBIDOPA AND LEVODOPA [Concomitant]
  6. EXCEGRAN [Concomitant]
  7. PAXIL [Concomitant]
  8. LASIX [Concomitant]
  9. WARFARIN SODIUM [Concomitant]
  10. BLOPRESS [Concomitant]
  11. ALDACTONE [Concomitant]
  12. ARTIST [Concomitant]
  13. NITOROL [Concomitant]

REACTIONS (5)
  - ANXIETY [None]
  - CONDITION AGGRAVATED [None]
  - HYPOAESTHESIA [None]
  - PANIC DISORDER [None]
  - SUICIDAL IDEATION [None]
